FAERS Safety Report 5174804-4 (Version None)
Quarter: 2006Q4

REPORT INFORMATION
  Report Type: 
  Country: None (occurrence: None)
  Receive Date: 20061214
  Receipt Date: 20060610
  Transmission Date: 20070319
  Serious: No
  Sender: FDA-Public Use
  Company Number: US-AMGEN-KDL182656

PATIENT
  Sex: Male

DRUGS (1)
  1. ENBREL [Suspect]
     Indication: ANKYLOSING SPONDYLITIS
     Route: 058
     Dates: start: 20060419

REACTIONS (6)
  - ARTHRALGIA [None]
  - HEADACHE [None]
  - NASAL CONGESTION [None]
  - PAIN IN EXTREMITY [None]
  - RHINORRHOEA [None]
  - SPUTUM DISCOLOURED [None]
